FAERS Safety Report 20865436 (Version 2)
Quarter: 2022Q2

REPORT INFORMATION
  Report Type: Report from Study
  Country: US (occurrence: US)
  Receive Date: 20220524
  Receipt Date: 20220625
  Transmission Date: 20220721
  Serious: Yes (Other)
  Sender: FDA-Public Use
  Company Number: US-ABBVIE-22K-163-4407658-00

PATIENT
  Sex: Male

DRUGS (1)
  1. IMBRUVICA [Suspect]
     Active Substance: IBRUTINIB
     Indication: Chronic lymphocytic leukaemia
     Route: 048
     Dates: start: 201810

REACTIONS (7)
  - Chemotherapy [Unknown]
  - Renal disorder [Unknown]
  - Post procedural complication [Unknown]
  - Renal function test abnormal [Unknown]
  - White blood cell count abnormal [Unknown]
  - Chronic kidney disease [Unknown]
  - Pneumonia [Unknown]
